FAERS Safety Report 17252337 (Version 2)
Quarter: 2020Q1

REPORT INFORMATION
  Report Type: Spontaneous
  Country: JP (occurrence: JP)
  Receive Date: 20200109
  Receipt Date: 20200117
  Transmission Date: 20200409
  Serious: Yes (Death, Other)
  Sender: FDA-Public Use
  Company Number: JP-PFIZER INC-2020009049

PATIENT
  Age: 47 Year
  Sex: Female

DRUGS (12)
  1. VINCRISTINE SULFATE. [Concomitant]
     Active Substance: VINCRISTINE SULFATE
     Indication: BURKITT^S LEUKAEMIA
     Dosage: UNK
  2. CYCLOPHOSPHAMIDE. [Concomitant]
     Active Substance: CYCLOPHOSPHAMIDE
     Indication: BURKITT^S LEUKAEMIA
     Dosage: UNK
  3. DOXORUBICIN HYDROCHLORIDE. [Concomitant]
     Active Substance: DOXORUBICIN HYDROCHLORIDE
     Indication: BURKITT^S LEUKAEMIA
     Dosage: UNK
  4. ETOPOSIDE. [Concomitant]
     Active Substance: ETOPOSIDE
     Indication: BURKITT^S LEUKAEMIA
     Dosage: UNK
  5. VORICONAZOLE. [Suspect]
     Active Substance: VORICONAZOLE
     Indication: ANTIFUNGAL PROPHYLAXIS
  6. DEXAMETHASONE. [Concomitant]
     Active Substance: DEXAMETHASONE
     Dosage: UNK
  7. CYTARABINE\METHOTREXATE [Concomitant]
     Active Substance: CYTARABINE\METHOTREXATE
     Indication: BURKITT^S LYMPHOMA
     Dosage: UNK (HIGH-DOSE)
  8. IFOSFAMIDE. [Concomitant]
     Active Substance: IFOSFAMIDE
     Indication: BURKITT^S LEUKAEMIA
     Dosage: UNK
  9. VORICONAZOLE. [Suspect]
     Active Substance: VORICONAZOLE
     Indication: ASPERGILLUS INFECTION
     Dosage: 300 MG, 2X/DAY
     Route: 048
  10. RITUXIMAB. [Concomitant]
     Active Substance: RITUXIMAB
     Indication: BURKITT^S LEUKAEMIA
     Dosage: UNK
  11. CYTARABINE. [Concomitant]
     Active Substance: CYTARABINE
     Indication: BURKITT^S LEUKAEMIA
     Dosage: UNK
  12. METHOTREXATE. [Concomitant]
     Active Substance: METHOTREXATE
     Indication: BURKITT^S LEUKAEMIA
     Dosage: UNK (HIGH DOSE)

REACTIONS (3)
  - Drug ineffective [Fatal]
  - Trichosporon infection [Fatal]
  - Fungaemia [Fatal]
